FAERS Safety Report 8791057 (Version 1)
Quarter: 2012Q4

REPORT INFORMATION
  Report Type: Spontaneous
  Country: US (occurrence: None)
  Receive Date: 20120910
  Receipt Date: 20120910
  Transmission Date: 20130627
  Serious: Yes (Other)
  Sender: FDA-Public Use
  Company Number: 2012SA061861

PATIENT
  Age: 86 Year
  Sex: Male

DRUGS (1)
  1. ASPERCREME HEAT RELIEVING GEL [Suspect]
     Indication: BACK PAIN
     Route: 061
     Dates: start: 20120816

REACTIONS (3)
  - Dry skin [None]
  - Wound [None]
  - Wrong technique in drug usage process [None]
